FAERS Safety Report 8475912-2 (Version None)
Quarter: 2012Q2

REPORT INFORMATION
  Report Type: 
  Country: None (occurrence: None)
  Receive Date: 20120628
  Receipt Date: 20120615
  Transmission Date: 20120825
  Serious: Yes (Disabling, Other)
  Sender: FDA-Public Use
  Company Number: FR-JNJFOC-20120520421

PATIENT
  Sex: Female

DRUGS (10)
  1. REMICADE [Suspect]
     Indication: ANKYLOSING SPONDYLITIS
     Route: 042
     Dates: start: 20080110
  2. METHOTREXATE [Concomitant]
     Route: 065
  3. ACETAMINOPHEN [Concomitant]
     Dosage: 4-6 AS NECESSARY
     Route: 065
  4. REMICADE [Suspect]
     Route: 042
     Dates: end: 20081205
  5. SULFASALAZINE [Concomitant]
     Dosage: DOSE: 6 QD
     Route: 065
  6. REMICADE [Suspect]
     Indication: CROHN'S DISEASE
     Route: 042
     Dates: start: 20080110
  7. REMICADE [Suspect]
     Route: 042
     Dates: end: 20081205
  8. REMICADE [Suspect]
     Route: 042
     Dates: end: 20090116
  9. REMICADE [Suspect]
     Route: 042
     Dates: end: 20090116
  10. CORTISONE ACETATE [Concomitant]
     Route: 065

REACTIONS (9)
  - HYPOKINESIA [None]
  - ASTHENIA [None]
  - MYELITIS [None]
  - DEPRESSION [None]
  - DRUG INEFFECTIVE [None]
  - EXTRAPYRAMIDAL DISORDER [None]
  - PSORIASIS [None]
  - MIDDLE INSOMNIA [None]
  - PRURITUS [None]
